FAERS Safety Report 8391095-1 (Version None)
Quarter: 2012Q2

REPORT INFORMATION
  Report Type: 
  Country: None (occurrence: None)
  Receive Date: 20120529
  Receipt Date: 20120516
  Transmission Date: 20120825
  Serious: Yes (Other)
  Sender: FDA-Public Use
  Company Number: US-JNJFOC-20120504300

PATIENT
  Age: 83 Year
  Sex: Female
  Weight: 65.77 kg

DRUGS (8)
  1. AMLODIPINE BESYLATE [Concomitant]
     Route: 065
  2. EXTRA STRENGTH TYLENOL PM [Suspect]
     Indication: HEADACHE
     Route: 048
     Dates: start: 20120428
  3. PLAVIX [Concomitant]
     Route: 065
  4. EXTRA STRENGTH TYLENOL PM [Suspect]
     Indication: SLEEP DISORDER THERAPY
     Dosage: TAKING FOR YEARS
     Route: 048
  5. LIPITOR [Concomitant]
     Route: 065
  6. METOPROLOL TARTRATE [Concomitant]
     Route: 065
  7. EXTRA STRENGTH TYLENOL PM [Suspect]
     Route: 048
     Dates: start: 20120428
  8. EXTRA STRENGTH TYLENOL PM [Suspect]
     Dosage: TAKING FOR YEARS
     Route: 048

REACTIONS (6)
  - PRODUCT OUTER PACKAGING ISSUE [None]
  - DRUG INEFFECTIVE [None]
  - HERPES ZOSTER [None]
  - PRODUCT QUALITY ISSUE [None]
  - PRODUCT TAMPERING [None]
  - INSOMNIA [None]
